FAERS Safety Report 15532167 (Version 2)
Quarter: 2018Q4

REPORT INFORMATION
  Report Type: Spontaneous
  Country: US (occurrence: US)
  Receive Date: 20181019
  Receipt Date: 20181130
  Transmission Date: 20190205
  Serious: No
  Sender: FDA-Public Use
  Company Number: US-PFIZER INC-2018418299

PATIENT
  Age: 62 Year
  Sex: Male

DRUGS (2)
  1. DEPO-TESTOSTERONE [Suspect]
     Active Substance: TESTOSTERONE CYPIONATE
     Dosage: 200 MG/ML, EVERY TWO WEEKS
  2. DEPO-TESTOSTERONE [Suspect]
     Active Substance: TESTOSTERONE CYPIONATE
     Dosage: 200 MG/ML, EVERY TWO WEEKS

REACTIONS (3)
  - Poor quality product administered [Unknown]
  - Product deposit [Unknown]
  - Injection site bruising [Unknown]
